FAERS Safety Report 13636733 (Version 2)
Quarter: 2017Q2

REPORT INFORMATION
  Report Type: Spontaneous
  Country: US (occurrence: US)
  Receive Date: 20170609
  Receipt Date: 20170609
  Transmission Date: 20170830
  Serious: Yes (Other)
  Sender: FDA-Public Use
  Company Number: US-BRISTOL-MYERS SQUIBB COMPANY-BMS-2017-049339

PATIENT

DRUGS (1)
  1. IPILIMUMAB [Suspect]
     Active Substance: IPILIMUMAB
     Indication: PRODUCT USED FOR UNKNOWN INDICATION
     Route: 065

REACTIONS (7)
  - Nerve injury [Unknown]
  - Diarrhoea [Unknown]
  - Eating disorder [Unknown]
  - Hospitalisation [Unknown]
  - Pneumonia [Unknown]
  - Swelling face [Unknown]
  - Candida infection [Unknown]
